FAERS Safety Report 7819491-9 (Version None)
Quarter: 2011Q4

REPORT INFORMATION
  Report Type: 
  Country: None (occurrence: None)
  Receive Date: 20111018
  Receipt Date: 20101014
  Transmission Date: 20120403
  Serious: No
  Sender: FDA-Public Use
  Company Number: US-ASTRAZENECA-2010SE48747

PATIENT
  Age: 56 Year
  Sex: Female

DRUGS (11)
  1. SYMBICORT [Suspect]
     Indication: ASTHMA
     Dosage: 160/4.5 MCG TWO PUFFS TWICE A DAY
     Route: 055
     Dates: end: 20100701
  2. ACIPHEX [Concomitant]
  3. HUMALOG [Concomitant]
  4. MORPHINE SULFATE [Concomitant]
  5. PROGRAF [Concomitant]
  6. LEXAPRO [Concomitant]
  7. LANTUS [Concomitant]
  8. NEURONTIN [Concomitant]
  9. MYCOPHENOLATE MOFETIL (CELLCEPT) [Concomitant]
  10. AMITRIPTYLINE HCL [Concomitant]
  11. SYNTHROID [Concomitant]

REACTIONS (5)
  - LOOSE TOOTH [None]
  - SINUSITIS [None]
  - PNEUMONIA [None]
  - HEADACHE [None]
  - TOOTH LOSS [None]
